FAERS Safety Report 6432696-7 (Version None)
Quarter: 2009Q4

REPORT INFORMATION
  Report Type: 
  Country: None (occurrence: None)
  Receive Date: 20091109
  Receipt Date: 20091027
  Transmission Date: 20100525
  Serious: No
  Sender: FDA-Public Use
  Company Number: US-JNJFOC-20091008945

PATIENT
  Sex: Female
  Weight: 69.85 kg

DRUGS (1)
  1. FENTANYL TRANSDERMAL SYSTEM [Suspect]
     Indication: ABDOMINAL PAIN
     Dosage: NDC#: 0981-7112-55
     Route: 062

REACTIONS (3)
  - APPLICATION SITE PRURITUS [None]
  - PRURITUS [None]
  - TREATMENT NONCOMPLIANCE [None]
